FAERS Safety Report 23767294 (Version 1)
Quarter: 2024Q2

REPORT INFORMATION
  Report Type: Spontaneous
  Country: US (occurrence: US)
  Receive Date: 20240422
  Receipt Date: 20240422
  Transmission Date: 20240715
  Serious: Yes (Other)
  Sender: FDA-Public Use
  Company Number: US-AMGEN-USASP2024075970

PATIENT
  Age: 47 Year
  Sex: Male
  Weight: 101 kg

DRUGS (6)
  1. VECTIBIX [Suspect]
     Active Substance: PANITUMUMAB
     Indication: Rectal cancer
     Dosage: 484 MILLIGRAM, Q2WK EVERY 14 DAYS, 100 MG X 1 VIAL
     Route: 065
     Dates: start: 20230808
  2. VECTIBIX [Suspect]
     Active Substance: PANITUMUMAB
     Dosage: 484 MILLIGRAM, Q2WK DESCRIPTION EVERY 14 DAYS, 400 MG X 1 VIAL
     Route: 065
  3. VECTIBIX [Suspect]
     Active Substance: PANITUMUMAB
     Dosage: UNK
     Route: 065
     Dates: start: 20240401
  4. LEUCOVORIN [Concomitant]
     Active Substance: LEUCOVORIN\LEUCOVORIN CALCIUM
     Indication: Product used for unknown indication
     Dosage: UNK
  5. FLUOROURACIL [Concomitant]
     Active Substance: FLUOROURACIL
     Indication: Product used for unknown indication
     Dosage: UNK
  6. IRINOTECAN [Concomitant]
     Active Substance: IRINOTECAN
     Indication: Product used for unknown indication
     Dosage: UNK

REACTIONS (1)
  - Vascular device occlusion [Unknown]

NARRATIVE: CASE EVENT DATE: 20240311
